FAERS Safety Report 8232218-4 (Version None)
Quarter: 2012Q1

REPORT INFORMATION
  Report Type: 
  Country: None (occurrence: None)
  Receive Date: 20120320
  Receipt Date: 20120306
  Transmission Date: 20120608
  Serious: Yes (Disabling, Other)
  Sender: FDA-Public Use
  Company Number: 2010MA001272

PATIENT
  Age: 61 Year
  Sex: Female
  Weight: 77.1115 kg

DRUGS (33)
  1. METOCLOPRAMIDE [Suspect]
     Indication: IMPAIRED GASTRIC EMPTYING
     Dosage: 10 MG;QID;PO
     Route: 048
     Dates: start: 20060211, end: 20090201
  2. METOCLOPRAMIDE [Suspect]
     Indication: ABDOMINAL PAIN
     Dosage: 10 MG;QID;PO
     Route: 048
     Dates: start: 20060211, end: 20090201
  3. ALPRAZOLAM [Concomitant]
  4. ZOLPIDEM [Concomitant]
  5. IMITREX [Concomitant]
  6. POTASSIUM [Concomitant]
  7. PROVIGIL [Concomitant]
  8. MORPHINE [Concomitant]
  9. GABAPENTIN [Concomitant]
  10. OXYCODONE HCL [Concomitant]
  11. GALANTAMINE HYDROBROMIDE [Concomitant]
  12. ZYRTEC [Concomitant]
  13. XANAX [Concomitant]
  14. VERAPAMIL [Concomitant]
  15. EFFEXOR [Concomitant]
  16. TREXIMET [Concomitant]
  17. POLYETHYLENE [Concomitant]
  18. PROMETHAZINE [Concomitant]
  19. MECLIZINE [Concomitant]
  20. AMLODIPINE [Concomitant]
  21. TRAZODONE HCL [Concomitant]
  22. BENTYL [Concomitant]
  23. DURAGESIC-100 [Concomitant]
  24. GLYCOLAX [Concomitant]
  25. DICYCLOMINE [Concomitant]
  26. FENTANYL [Concomitant]
  27. ATIVAN [Concomitant]
  28. GLYCOL [Concomitant]
  29. BUPROPION HYDROCHLORIDE [Concomitant]
  30. LYRICA [Concomitant]
  31. LIDOCAINE [Concomitant]
  32. CLINDAMYCIN [Concomitant]
  33. SKELAXIN [Concomitant]

REACTIONS (21)
  - TENDERNESS [None]
  - GAIT DISTURBANCE [None]
  - AXILLARY PAIN [None]
  - ABDOMINAL PAIN [None]
  - DRY MOUTH [None]
  - DEPRESSED MOOD [None]
  - EMOTIONAL DISORDER [None]
  - PAIN [None]
  - HYPOAESTHESIA [None]
  - ECONOMIC PROBLEM [None]
  - NERVOUS SYSTEM DISORDER [None]
  - PAIN IN EXTREMITY [None]
  - DRY EYE [None]
  - TARDIVE DYSKINESIA [None]
  - WEIGHT INCREASED [None]
  - FEELING ABNORMAL [None]
  - OEDEMA PERIPHERAL [None]
  - ASTHENIA [None]
  - SWELLING [None]
  - ARTHRALGIA [None]
  - MYALGIA [None]
